FAERS Safety Report 8539508-6 (Version None)
Quarter: 2012Q3

REPORT INFORMATION
  Report Type: 
  Country: None (occurrence: None)
  Receive Date: 20120726
  Receipt Date: 20120718
  Transmission Date: 20120928
  Serious: Yes (Other)
  Sender: FDA-Public Use
  Company Number: DE-SANOFI-AVENTIS-2012SA016101

PATIENT
  Age: 62 Year
  Sex: Male

DRUGS (7)
  1. SODIUM CHLORIDE [Concomitant]
     Dosage: 30 MIN BEFORE THERAPY
  2. DOCETAXEL [Suspect]
     Route: 042
  3. DOCETAXEL [Suspect]
     Route: 042
  4. ALL OTHER THERAPEUTIC PRODUCTS [Concomitant]
     Indication: PREMEDICATION
  5. ALL OTHER THERAPEUTIC PRODUCTS [Concomitant]
  6. GLUCOCORTICOSTEROIDS [Concomitant]
     Dosage: 12 AND 6 H BEFORE THERAPY
     Route: 048
  7. ANTIHISTAMINES [Concomitant]
     Route: 042

REACTIONS (4)
  - HYPERTENSIVE CRISIS [None]
  - DYSPNOEA [None]
  - ANAPHYLACTIC REACTION [None]
  - FLUSHING [None]
